FAERS Safety Report 11362576 (Version 4)
Quarter: 2015Q4

REPORT INFORMATION
  Report Type: Spontaneous
  Country: US (occurrence: US)
  Receive Date: 20150810
  Receipt Date: 20151204
  Transmission Date: 20160304
  Serious: Yes (Hospitalization, Other)
  Sender: FDA-Public Use
  Company Number: US-PFIZER INC-2015260425

PATIENT
  Age: 43 Year
  Sex: Female

DRUGS (4)
  1. COUMADIN [Suspect]
     Active Substance: WARFARIN SODIUM
     Indication: THROMBOSIS
  2. ARGATROBAN. [Suspect]
     Active Substance: ARGATROBAN
     Indication: THROMBOSIS
     Dosage: UNK
     Route: 042
     Dates: start: 201412
  3. ARGATROBAN. [Suspect]
     Active Substance: ARGATROBAN
     Indication: THROMBOSIS
     Dosage: UNK
     Route: 042
     Dates: start: 201401
  4. COUMADIN [Suspect]
     Active Substance: WARFARIN SODIUM
     Indication: THROMBOSIS
     Dosage: UNK
     Dates: start: 201412

REACTIONS (6)
  - Thrombosis [Unknown]
  - Thrombosis [Unknown]
  - Peripheral vascular disorder [Unknown]
  - International normalised ratio decreased [Unknown]
  - Prothrombin time prolonged [Unknown]
  - Peripheral vascular disorder [Unknown]

NARRATIVE: CASE EVENT DATE: 201401
